FAERS Safety Report 19727221 (Version 4)
Quarter: 2022Q1

REPORT INFORMATION
  Report Type: Report from Study
  Country: US (occurrence: US)
  Receive Date: 20210819
  Receipt Date: 20220317
  Transmission Date: 20220423
  Serious: Yes (Other)
  Sender: FDA-Public Use
  Company Number: NVSC2021US184731

PATIENT
  Age: 58 Year
  Sex: Male

DRUGS (3)
  1. MAYZENT [Suspect]
     Active Substance: SIPONIMOD
     Indication: Product used for unknown indication
     Dosage: UNK
     Route: 065
     Dates: start: 202106
  2. MAYZENT [Suspect]
     Active Substance: SIPONIMOD
     Dosage: 2 MG, QD
     Route: 048
     Dates: start: 20210719
  3. MAYZENT [Suspect]
     Active Substance: SIPONIMOD
     Dosage: UNK
     Route: 065
     Dates: end: 202109

REACTIONS (11)
  - Neuropathy peripheral [Unknown]
  - Balance disorder [Unknown]
  - Burning sensation [Unknown]
  - Tremor [Unknown]
  - Oedema peripheral [Unknown]
  - Muscle spasms [Unknown]
  - Muscle twitching [Unknown]
  - Hypoaesthesia [Unknown]
  - Memory impairment [Unknown]
  - Condition aggravated [Unknown]
  - Herpes zoster [Unknown]

NARRATIVE: CASE EVENT DATE: 20210819
